FAERS Safety Report 13995774 (Version 3)
Quarter: 2018Q1

REPORT INFORMATION
  Report Type: Spontaneous
  Country: US (occurrence: US)
  Receive Date: 20170921
  Receipt Date: 20180104
  Transmission Date: 20180508
  Serious: Yes (Death, Hospitalization, Other)
  Sender: FDA-Public Use
  Company Number: US-ASTRAZENECA-2017SE95820

PATIENT
  Age: 21241 Day
  Sex: Female
  Weight: 47 kg

DRUGS (23)
  1. SUCRALFATE. [Concomitant]
     Active Substance: SUCRALFATE
  2. NOVOLOG [Concomitant]
     Active Substance: INSULIN ASPART
     Route: 058
  3. MORPHINE [Concomitant]
     Active Substance: MORPHINE
     Dosage: 0.25 ML TO 1 ML
     Route: 048
     Dates: start: 20160911
  4. CARVEDILOL. [Concomitant]
     Active Substance: CARVEDILOL
     Route: 048
  5. ONDANSETRON [Concomitant]
     Active Substance: ONDANSETRON
     Route: 048
     Dates: start: 20160915
  6. LORAZEPAM. [Concomitant]
     Active Substance: LORAZEPAM
     Dosage: TAKE 1 TO 2 TABLETS BY MOUTH EVERY 4 HOURS AS NEEDED
     Route: 048
     Dates: start: 20160911
  7. FARXIGA [Suspect]
     Active Substance: DAPAGLIFLOZIN PROPANEDIOL
     Indication: TYPE 2 DIABETES MELLITUS
     Dosage: 5.0MG UNKNOWN
     Route: 048
     Dates: start: 20160127, end: 20160226
  8. HYDROCODONE-ACETAMINOPHEN [Concomitant]
     Active Substance: ACETAMINOPHEN\HYDROCODONE
     Dosage: 325 MG-5 MG
     Route: 048
  9. HEPARIN [Concomitant]
     Active Substance: HEPARIN SODIUM
  10. ASPIRIN. [Concomitant]
     Active Substance: ASPIRIN
     Route: 048
  11. LOVENOX [Concomitant]
     Active Substance: ENOXAPARIN SODIUM
     Route: 058
  12. FAMOTIDINE. [Concomitant]
     Active Substance: FAMOTIDINE
     Route: 048
  13. METHYLPREDNISOLONE. [Concomitant]
     Active Substance: METHYLPREDNISOLONE
  14. LOSARTAN. [Concomitant]
     Active Substance: LOSARTAN
     Route: 048
  15. PROTONIX/PANTOPRAZOLE SODIUM [Concomitant]
     Route: 048
  16. PROTONIX/PANTOPRAZOLE SODIUM [Concomitant]
     Dosage: 10.0MEQ UNKNOWN
     Route: 048
  17. FARXIGA [Suspect]
     Active Substance: DAPAGLIFLOZIN PROPANEDIOL
     Indication: TYPE 2 DIABETES MELLITUS
     Route: 048
     Dates: start: 201401
  18. FARXIGA [Suspect]
     Active Substance: DAPAGLIFLOZIN PROPANEDIOL
     Indication: TYPE 2 DIABETES MELLITUS
     Dosage: 5.0MG UNKNOWN
     Route: 048
     Dates: start: 20151229
  19. PREDNISONE. [Concomitant]
     Active Substance: PREDNISONE
  20. MAGNESIUM CHLORIDE. [Concomitant]
     Active Substance: MAGNESIUM CHLORIDE
  21. LEVEMIR [Concomitant]
     Active Substance: INSULIN DETEMIR
  22. PLAVIX [Concomitant]
     Active Substance: CLOPIDOGREL BISULFATE
  23. CEFTRIAXONE SODIUM. [Concomitant]
     Active Substance: CEFTRIAXONE SODIUM

REACTIONS (20)
  - Chronic kidney disease [Fatal]
  - Renal failure [Unknown]
  - Escherichia sepsis [Unknown]
  - Blood cholesterol increased [Unknown]
  - Hypotension [Unknown]
  - Fracture [Unknown]
  - Bone density decreased [Unknown]
  - Pulmonary hypertension [Unknown]
  - Diabetic ketoacidosis [Fatal]
  - Nephrogenic anaemia [Unknown]
  - Osteoarthritis [Unknown]
  - Renal injury [Unknown]
  - Escherichia urinary tract infection [Recovered/Resolved]
  - Cystitis [Unknown]
  - End stage renal disease [Fatal]
  - Pyelonephritis [Unknown]
  - Acute kidney injury [Unknown]
  - Renal impairment [Unknown]
  - Dysphagia [Unknown]
  - Cerebrovascular disorder [Unknown]

NARRATIVE: CASE EVENT DATE: 20140604
